FAERS Safety Report 16092594 (Version 1)
Quarter: 2019Q1

REPORT INFORMATION
  Report Type: Spontaneous
  Country: CZ (occurrence: CZ)
  Receive Date: 20190319
  Receipt Date: 20190319
  Transmission Date: 20190418
  Serious: Yes (Other)
  Sender: FDA-Public Use
  Company Number: PHHY2019CZ059794

PATIENT
  Age: 76 Year
  Sex: Male

DRUGS (6)
  1. TAFINLAR [Suspect]
     Active Substance: DABRAFENIB MESYLATE
     Dosage: UNK (REDUCED TO 75 PERCENT)
     Route: 065
     Dates: start: 20180405, end: 20180501
  2. TAFINLAR [Suspect]
     Active Substance: DABRAFENIB MESYLATE
     Dosage: 100 MG, BID (REDUCTION OF DOSE)
     Route: 065
  3. TRAMETINIB [Suspect]
     Active Substance: TRAMETINIB
     Dosage: 1.5 MG, QD (DOSE REDUCTION)
     Route: 065
  4. TAFINLAR [Suspect]
     Active Substance: DABRAFENIB MESYLATE
     Indication: BRAF GENE MUTATION
     Dosage: UNK (DOSE REDUCED TO 50 PERECENT)
     Route: 065
     Dates: start: 20180223
  5. TRAMETINIB [Suspect]
     Active Substance: TRAMETINIB
     Dosage: UNK (DOSE REDUCTION BY 25 PERCENT)
     Route: 065
     Dates: end: 20180501
  6. TRAMETINIB [Suspect]
     Active Substance: TRAMETINIB
     Indication: BRAF GENE MUTATION
     Dosage: UNK
     Route: 065
     Dates: start: 20180705

REACTIONS (13)
  - Cerebrovascular accident [Recovered/Resolved]
  - Tumour haemorrhage [Unknown]
  - Venous thrombosis [Unknown]
  - Cerebral ischaemia [Unknown]
  - Vomiting [Recovered/Resolved]
  - Pulmonary embolism [Unknown]
  - Hemiparesis [Unknown]
  - Pyrexia [Recovered/Resolved]
  - Nausea [Recovered/Resolved]
  - Aphasia [Unknown]
  - Metastases to skin [Unknown]
  - Fatigue [Unknown]
  - Influenza [Recovered/Resolved]

NARRATIVE: CASE EVENT DATE: 2018
